FAERS Safety Report 4842673-5 (Version None)
Quarter: 2005Q4

REPORT INFORMATION
  Report Type: 
  Country: None (occurrence: None)
  Receive Date: 20051129
  Receipt Date: 20051110
  Transmission Date: 20060501
  Serious: No
  Sender: FDA-Public Use
  Company Number: USA0511112748

PATIENT
  Age: 70 Year
  Sex: Female

DRUGS (6)
  1. FORTEO (TERIPARATIDE) PEN, DISPOSABLE [Suspect]
     Indication: OSTEOPOROSIS
     Dosage: 20 UG, DAILY 91/D), SUBCUTANEOUS
     Route: 058
     Dates: start: 20051011
  2. FORTEO PEN, DISPOSABLE [Concomitant]
  3. ZYPREXA [Concomitant]
  4. OSCAL (CALCIUM CARBONATE) [Concomitant]
  5. VITAMIN D (EROGOCALCIFEROL) [Concomitant]
  6. LITHIUM CARBONATE [Concomitant]

REACTIONS (1)
  - HYPERCALCAEMIA [None]
